FAERS Safety Report 9050640 (Version 1)
Quarter: 2013Q1

REPORT INFORMATION
  Report Type: Spontaneous
  Country: US (occurrence: US)
  Receive Date: 20130205
  Receipt Date: 20130205
  Transmission Date: 20140127
  Serious: Yes (Hospitalization)
  Sender: FDA-Public Use
  Company Number: US-ALEXION PHARMACEUTICALS INC.-A201300162

PATIENT
  Age: 36 None
  Sex: Female

DRUGS (2)
  1. SOLIRIS 300MG [Suspect]
     Indication: PAROXYSMAL NOCTURNAL HAEMOGLOBINURIA
     Dosage: UNK
     Route: 042
     Dates: start: 20070522
  2. SOLIRIS 300MG [Suspect]
     Dosage: 900 MG, EVERY 12 DAYS
     Route: 042
     Dates: start: 20120222

REACTIONS (2)
  - Aplastic anaemia [Unknown]
  - Reticulocyte count increased [Unknown]
